FAERS Safety Report 13402083 (Version 1)
Quarter: 2017Q2

REPORT INFORMATION
  Report Type: Report from Study
  Country: None (occurrence: US)
  Receive Date: 20170404
  Receipt Date: 20170404
  Transmission Date: 20170830
  Serious: Yes (Congenital Anomaly, Other)
  Sender: FDA-Public Use
  Company Number: US-ABBVIE-17K-163-1916526-00

PATIENT
  Age: 56 Year
  Sex: Male

DRUGS (5)
  1. HUMIRA [Suspect]
     Active Substance: ADALIMUMAB
     Indication: COLITIS ULCERATIVE
     Route: 058
     Dates: start: 20020701, end: 201412
  2. IBUPROFEN. [Suspect]
     Active Substance: IBUPROFEN
     Indication: PAIN
     Route: 065
  3. CRESTOR [Concomitant]
     Active Substance: ROSUVASTATIN CALCIUM
     Indication: PRODUCT USED FOR UNKNOWN INDICATION
  4. LYRICA [Concomitant]
     Active Substance: PREGABALIN
     Indication: PRODUCT USED FOR UNKNOWN INDICATION
  5. HUMIRA [Suspect]
     Active Substance: ADALIMUMAB
     Route: 058
     Dates: start: 20160608

REACTIONS (25)
  - Balance disorder [Unknown]
  - Skin discolouration [Unknown]
  - Rectal haemorrhage [Unknown]
  - Nodule [Unknown]
  - Spine malformation [Unknown]
  - Prostatomegaly [Unknown]
  - Back pain [Unknown]
  - Depressed mood [Unknown]
  - Peripheral swelling [Unknown]
  - Rash macular [Unknown]
  - Colitis ulcerative [Unknown]
  - Constipation [Unknown]
  - Loss of personal independence in daily activities [Unknown]
  - Frequent bowel movements [Unknown]
  - Insomnia [Unknown]
  - Blood cholesterol abnormal [Unknown]
  - Gastrooesophageal reflux disease [Unknown]
  - Spinal cord compression [Unknown]
  - Drug interaction [Unknown]
  - Hypoaesthesia [Unknown]
  - Road traffic accident [Unknown]
  - Abdominal pain [Unknown]
  - Faecaloma [Unknown]
  - Diarrhoea haemorrhagic [Unknown]
  - Drug ineffective [Unknown]

NARRATIVE: CASE EVENT DATE: 201601
